FAERS Safety Report 4819698-9 (Version None)
Quarter: 2005Q4

REPORT INFORMATION
  Report Type: 
  Country: None (occurrence: None)
  Receive Date: 20051102
  Receipt Date: 20051024
  Transmission Date: 20060501
  Serious: Yes (Death, Hospitalization, Other)
  Sender: FDA-Public Use
  Company Number: US-2005-018884

PATIENT
  Age: 66 Year
  Sex: Male
  Weight: 80.2 kg

DRUGS (10)
  1. CAMPATH [Suspect]
     Indication: CHRONIC LYMPHOCYTIC LEUKAEMIA
     Dosage: 3/10/30MG:
     Dates: start: 20050727, end: 20050824
  2. BACTRIM DS [Concomitant]
  3. VALCYTE [Concomitant]
  4. HYDROQUINONE (HYDROQUINONE) [Concomitant]
  5. KETOCONAZOLE [Concomitant]
  6. CEPHALEXIN [Concomitant]
  7. FLUCONAZOLE [Concomitant]
  8. AMBIEN [Concomitant]
  9. DIPHENHYDRAMINE (DIPHENHYDRAMINE) [Concomitant]
  10. ACETAMINOPHEN [Concomitant]

REACTIONS (20)
  - ACUTE MYOCARDIAL INFARCTION [None]
  - ATELECTASIS [None]
  - BLOOD LACTATE DEHYDROGENASE INCREASED [None]
  - BLOOD POTASSIUM INCREASED [None]
  - BRADYCARDIA [None]
  - CHRONIC LYMPHOCYTIC LEUKAEMIA [None]
  - DIALYSIS [None]
  - DIZZINESS [None]
  - DRUG TOXICITY [None]
  - GENERAL PHYSICAL HEALTH DETERIORATION [None]
  - HAEMOLYTIC ANAEMIA [None]
  - HEPATIC CYST [None]
  - LEUKAEMIA RECURRENT [None]
  - LUNG INFILTRATION [None]
  - MULTI-ORGAN FAILURE [None]
  - PLEURITIC PAIN [None]
  - PULMONARY EMBOLISM [None]
  - RENAL IMPAIRMENT [None]
  - VENTRICULAR TACHYCARDIA [None]
  - VOMITING [None]
